FAERS Safety Report 12196523 (Version 1)
Quarter: 2016Q1

REPORT INFORMATION
  Report Type: Spontaneous
  Country: CA (occurrence: CA)
  Receive Date: 20160321
  Receipt Date: 20160321
  Transmission Date: 20160526
  Serious: Yes (Hospitalization)
  Sender: FDA-Public Use
  Company Number: CA-IGI LABORATORIES, INC.-1049388

PATIENT
  Age: 52 Year
  Sex: Female

DRUGS (4)
  1. HERCEPTIN [Suspect]
     Active Substance: TRASTUZUMAB
  2. BENADRYL [Suspect]
     Active Substance: DIPHENHYDRAMINE HYDROCHLORIDE
     Route: 065
  3. ZANTAC [Suspect]
     Active Substance: RANITIDINE HYDROCHLORIDE
     Indication: PREMEDICATION
     Route: 065
  4. PERJETA [Suspect]
     Active Substance: PERTUZUMAB

REACTIONS (4)
  - Loss of consciousness [Unknown]
  - Tachycardia [Unknown]
  - Product use issue [Unknown]
  - Off label use [Unknown]
